FAERS Safety Report 23733232 (Version 1)
Quarter: 2024Q2

REPORT INFORMATION
  Report Type: Spontaneous
  Country: US (occurrence: US)
  Receive Date: 20240411
  Receipt Date: 20240411
  Transmission Date: 20240716
  Serious: Yes (Other)
  Sender: FDA-Public Use
  Company Number: US-OTSUKA PHARMACEUTICAL NETHERLANDS B.V.-AUR-005573

PATIENT
  Sex: Female

DRUGS (1)
  1. LUPKYNIS [Suspect]
     Active Substance: VOCLOSPORIN
     Indication: Lupus nephritis
     Dosage: UNKNOWN, NOT DISPENSED AT PANTHER AND NOT NOTED IN CLINICALS.
     Route: 048
     Dates: start: 20220601

REACTIONS (8)
  - Renal failure [Unknown]
  - Leukopenia [Unknown]
  - Polyarthritis [Unknown]
  - Rash [Unknown]
  - Proteinuria [Not Recovered/Not Resolved]
  - Drug hypersensitivity [Unknown]
  - Pleural effusion [Unknown]
  - Therapy interrupted [Unknown]
